FAERS Safety Report 4626682-7 (Version None)
Quarter: 2005Q2

REPORT INFORMATION
  Report Type: 
  Country: None (occurrence: None)
  Receive Date: 20050405
  Receipt Date: 20050324
  Transmission Date: 20051028
  Serious: Yes (Death)
  Sender: FDA-Public Use
  Company Number: US-JNJFOC-20050306232

PATIENT
  Sex: Male
  Weight: 86.18 kg

DRUGS (11)
  1. INFLIXIMAB [Suspect]
     Indication: RHEUMATOID ARTHRITIS
     Route: 042
  2. CELEBREX [Concomitant]
  3. CLORAZEPATE DIPOTASSIUM [Concomitant]
  4. METHOTREXATE [Concomitant]
  5. LIPITOR [Concomitant]
  6. FOLIC ACID [Concomitant]
  7. ADALAT [Concomitant]
  8. CLARITIN [Concomitant]
  9. TRAZODONE HCL [Concomitant]
  10. TYLENOL W/ CODEINE NO. 3 [Concomitant]
  11. PREDNISONE TAB [Concomitant]

REACTIONS (2)
  - POSTOPERATIVE THROMBOSIS [None]
  - THROMBOSIS [None]
